FAERS Safety Report 12628131 (Version 1)
Quarter: 2016Q3

REPORT INFORMATION
  Report Type: Spontaneous
  Country: US (occurrence: US)
  Receive Date: 20160808
  Receipt Date: 20160808
  Transmission Date: 20161109
  Serious: No
  Sender: FDA-Public Use
  Company Number: US-AUROBINDO-AUR-APU-2015-07856

PATIENT
  Age: 48 Year
  Sex: Male

DRUGS (1)
  1. LEVOFLOXACIN TABLETS 750MG [Suspect]
     Active Substance: LEVOFLOXACIN
     Indication: UPPER RESPIRATORY TRACT INFECTION
     Dosage: ONE TABLET A DAY FOR 10 DAYS
     Route: 065
     Dates: start: 20150811, end: 20150816

REACTIONS (8)
  - Myalgia [Recovering/Resolving]
  - Dyspnoea [Recovering/Resolving]
  - Insomnia [Recovering/Resolving]
  - Bone pain [Recovering/Resolving]
  - Tendonitis [Recovering/Resolving]
  - Pain [Recovering/Resolving]
  - Abasia [Recovering/Resolving]
  - Back pain [Recovering/Resolving]

NARRATIVE: CASE EVENT DATE: 20150814
